FAERS Safety Report 7311714-8 (Version None)
Quarter: 2011Q1

REPORT INFORMATION
  Report Type: 
  Country: None (occurrence: None)
  Receive Date: 20110224
  Receipt Date: 20110214
  Transmission Date: 20110831
  Serious: Yes (Hospitalization, Other)
  Sender: FDA-Public Use
  Company Number: BR-BAYER-201017065LA

PATIENT
  Sex: Male
  Weight: 90 kg

DRUGS (1)
  1. NEXAVAR [Suspect]
     Indication: HEPATIC NEOPLASM MALIGNANT
     Dosage: DAILY DOSE 800 MG
     Route: 048
     Dates: start: 20100201, end: 20100604

REACTIONS (11)
  - HEPATIC ENZYME ABNORMAL [None]
  - BLOOD ALBUMIN DECREASED [None]
  - HEPATOTOXICITY [None]
  - GAIT DISTURBANCE [None]
  - ANAEMIA [None]
  - HEPATITIS CHOLESTATIC [None]
  - ALOPECIA [None]
  - MUSCULAR WEAKNESS [None]
  - BLOOD BILIRUBIN INCREASED [None]
  - JAUNDICE [None]
  - WEIGHT DECREASED [None]
